FAERS Safety Report 7319252-3 (Version None)
Quarter: 2011Q1

REPORT INFORMATION
  Report Type: 
  Country: None (occurrence: None)
  Receive Date: 20110216
  Receipt Date: 20110207
  Transmission Date: 20110831
  Serious: Yes (Death, Hospitalization)
  Sender: FDA-Public Use
  Company Number: 027040

PATIENT
  Sex: Male
  Weight: 70 kg

DRUGS (11)
  1. FOSAMAX [Concomitant]
  2. CIMZIA [Suspect]
     Dosage: (200 MG, 6 DOSES SUBCUTANEOUS) ; (200 MG, 6 DOSES SUBCUTANEOUS) ; (200 MG 6 DOSES SUBCUTANEOUS)
     Route: 058
     Dates: start: 20100608, end: 20100817
  3. CIMZIA [Suspect]
     Dosage: (200 MG, 6 DOSES SUBCUTANEOUS) ; (200 MG, 6 DOSES SUBCUTANEOUS) ; (200 MG 6 DOSES SUBCUTANEOUS)
     Route: 058
     Dates: start: 20100427, end: 20100525
  4. CIMZIA [Suspect]
     Dosage: (200 MG, 6 DOSES SUBCUTANEOUS) ; (200 MG, 6 DOSES SUBCUTANEOUS) ; (200 MG 6 DOSES SUBCUTANEOUS)
     Route: 058
     Dates: start: 20100831, end: 20101110
  5. PREDNISOLON /00016201/ [Concomitant]
  6. RAMIPRIL [Concomitant]
  7. ASPIRIN [Concomitant]
  8. INEGY [Concomitant]
  9. CARVEDILOL [Concomitant]
  10. PANTOZOL /01263202/ [Concomitant]
  11. CALCILAC KT [Concomitant]

REACTIONS (25)
  - DIARRHOEA HAEMORRHAGIC [None]
  - BLOOD CREATININE INCREASED [None]
  - BILIRUBIN CONJUGATED INCREASED [None]
  - GENERAL PHYSICAL HEALTH DETERIORATION [None]
  - BREATH SOUNDS ABNORMAL [None]
  - MICROCYTIC ANAEMIA [None]
  - ALTERED STATE OF CONSCIOUSNESS [None]
  - HAEMATOCRIT DECREASED [None]
  - ASTHENIA [None]
  - ASPARTATE AMINOTRANSFERASE INCREASED [None]
  - CACHEXIA [None]
  - MOVEMENT DISORDER [None]
  - PALLOR [None]
  - TONGUE DRY [None]
  - PLATELET COUNT DECREASED [None]
  - WHITE BLOOD CELL COUNT INCREASED [None]
  - BLOOD POTASSIUM INCREASED [None]
  - BLOOD SODIUM DECREASED [None]
  - BLOOD GLUCOSE INCREASED [None]
  - HAEMOGLOBIN DECREASED [None]
  - BLOOD CALCIUM DECREASED [None]
  - PROTEIN TOTAL DECREASED [None]
  - DRY THROAT [None]
  - HYPONATRAEMIA [None]
  - HYPERKALAEMIA [None]
